APPROVED DRUG PRODUCT: NATEGLINIDE
Active Ingredient: NATEGLINIDE
Strength: 120MG
Dosage Form/Route: TABLET;ORAL
Application: A205544 | Product #002 | TE Code: AB
Applicant: RISING PHARMA HOLDINGS INC
Approved: Jun 18, 2018 | RLD: No | RS: No | Type: RX